FAERS Safety Report 9797809 (Version 1)
Quarter: 2014Q1

REPORT INFORMATION
  Report Type: Spontaneous
  Country: GB (occurrence: GB)
  Receive Date: 20140106
  Receipt Date: 20140106
  Transmission Date: 20141002
  Serious: Yes (Life-Threatening)
  Sender: FDA-Public Use
  Company Number: GB-ROCHE-1329510

PATIENT
  Age: 90 Year
  Sex: Female
  Weight: 75 kg

DRUGS (5)
  1. ACTILYSE [Suspect]
     Indication: ISCHAEMIC CEREBRAL INFARCTION
     Route: 042
     Dates: start: 20131220, end: 20131220
  2. CANDESARTAN [Concomitant]
  3. LEVOTHYROXINE SODIUM [Concomitant]
  4. NAPROXEN [Concomitant]
     Route: 065
  5. TRAMADOL [Concomitant]

REACTIONS (3)
  - Anaphylactic reaction [Recovered/Resolved]
  - Somnolence [Unknown]
  - Intraventricular haemorrhage [Unknown]
